FAERS Safety Report 10267669 (Version 1)
Quarter: 2014Q2

REPORT INFORMATION
  Report Type: Spontaneous
  Country: US (occurrence: US)
  Receive Date: 20140630
  Receipt Date: 20140630
  Transmission Date: 20141212
  Serious: No
  Sender: FDA-Public Use
  Company Number: US-PFIZER INC-2014178988

PATIENT
  Sex: Female

DRUGS (1)
  1. DICLOFENAC SODIUM/MISOPROSTOL [Suspect]
     Dosage: 1 DF(200 MCG/75 MG), 1X/DAY
     Route: 048
     Dates: start: 20140623

REACTIONS (1)
  - Malaise [Unknown]
